FAERS Safety Report 8883845 (Version 5)
Quarter: 2013Q3

REPORT INFORMATION
  Report Type: Report from Study
  Country: US (occurrence: US)
  Receive Date: 20121102
  Receipt Date: 20130717
  Transmission Date: 20140515
  Serious: Yes (Hospitalization)
  Sender: FDA-Public Use
  Company Number: US-SANOFI-AVENTIS-2012SA077557

PATIENT
  Age: 73 Year
  Sex: Female
  Weight: 85.21 kg

DRUGS (12)
  1. DOCETAXEL [Suspect]
     Indication: NEOPLASM MALIGNANT
     Dosage: EVERY 3 WEEKS, DAY 1 OF CYCLE
     Route: 041
     Dates: start: 20121001, end: 20121001
  2. RALOXIFENE [Concomitant]
  3. ASPIRIN [Concomitant]
  4. BENEFIBER [Concomitant]
  5. CELEXA [Concomitant]
  6. XANAX [Concomitant]
  7. FLEXERIL [Concomitant]
  8. ADVAIR [Concomitant]
  9. METOPROLOL [Concomitant]
  10. SPIRIVA [Concomitant]
  11. TRAZODONE [Concomitant]
  12. ALL OTHER THERAPEUTIC PRODUCTS [Concomitant]

REACTIONS (9)
  - Vision blurred [Recovered/Resolved]
  - Balance disorder [Recovered/Resolved]
  - Retinopathy hypertensive [Recovered/Resolved]
  - Abdominal pain [Recovered/Resolved]
  - Ataxia [Recovered/Resolved]
  - Brain mass [Unknown]
  - Cancer pain [Recovered/Resolved]
  - Febrile neutropenia [Recovered/Resolved]
  - Constipation [Recovered/Resolved]
